FAERS Safety Report 5107648-X (Version None)
Quarter: 2006Q3

REPORT INFORMATION
  Report Type: 
  Country: None (occurrence: None)
  Receive Date: 20060914
  Receipt Date: 20060905
  Transmission Date: 20061208
  Serious: Yes (Death)
  Sender: FDA-Public Use
  Company Number: 2006107752

PATIENT
  Age: 3 Year
  Sex: Male

DRUGS (4)
  1. DIPHENDYDRAMINE (DIPHENYDRAMINE) [Suspect]
     Indication: SEDATION
     Dosage: ORAL
     Route: 048
  2. MIDAZOLAM HCL [Suspect]
  3. THIOPENTAL SODIUM [Suspect]
  4. PENTOBARBITAL CAP [Suspect]

REACTIONS (3)
  - DRUG LEVEL ABOVE THERAPEUTIC [None]
  - INCORRECT DOSE ADMINISTERED [None]
  - SUBDURAL HAEMATOMA [None]
